FAERS Safety Report 6218038-0 (Version None)
Quarter: 2009Q2

REPORT INFORMATION
  Report Type: 
  Country: None (occurrence: None)
  Receive Date: 20090604
  Receipt Date: 20090604
  Transmission Date: 20091009
  Serious: Yes (Other)
  Sender: FDA-Public Use
  Company Number: None

PATIENT
  Sex: Female
  Weight: 15.1 kg

DRUGS (1)
  1. TOPAMAX SPRINKLE [Suspect]
     Indication: MYOCLONIC EPILEPSY
     Dosage: 1 CAP BID PO  AT LEAST 2 1/2 YEARS
     Route: 048

REACTIONS (1)
  - PRODUCT SUBSTITUTION ISSUE [None]
